FAERS Safety Report 22354244 (Version 1)
Quarter: 2023Q2

REPORT INFORMATION
  Report Type: Spontaneous
  Country: JP (occurrence: JP)
  Receive Date: 20230523
  Receipt Date: 20230523
  Transmission Date: 20230721
  Serious: Yes (Hospitalization, Other)
  Sender: FDA-Public Use
  Company Number: JP-CPL-003407

PATIENT
  Age: 6 Decade
  Sex: Male

DRUGS (12)
  1. ACYCLOVIR [Suspect]
     Active Substance: ACYCLOVIR
     Indication: Pneumonia aspiration
  2. LEVETIRACETAM [Suspect]
     Active Substance: LEVETIRACETAM
     Indication: Pneumonia aspiration
  3. PIPERACILLIN AND TAZOBACTAM [Suspect]
     Active Substance: PIPERACILLIN SODIUM\TAZOBACTAM SODIUM
     Indication: Pneumonia aspiration
  4. AMPICILLIN SODIUM\SULBACTAM SODIUM [Suspect]
     Active Substance: AMPICILLIN SODIUM\SULBACTAM SODIUM
     Indication: Pneumonia aspiration
  5. PHENYTOIN [Suspect]
     Active Substance: PHENYTOIN
     Indication: Pneumonia aspiration
  6. VANCOMYCIN [Suspect]
     Active Substance: VANCOMYCIN
     Indication: Pneumonia aspiration
  7. ACYCLOVIR [Suspect]
     Active Substance: ACYCLOVIR
     Indication: Urinary tract infection
  8. LEVETIRACETAM [Suspect]
     Active Substance: LEVETIRACETAM
     Indication: Urinary tract infection
  9. PIPERACILLIN AND TAZOBACTAM [Suspect]
     Active Substance: PIPERACILLIN SODIUM\TAZOBACTAM SODIUM
     Indication: Urinary tract infection
  10. AMPICILLIN SODIUM\SULBACTAM SODIUM [Suspect]
     Active Substance: AMPICILLIN SODIUM\SULBACTAM SODIUM
     Indication: Urinary tract infection
  11. PHENYTOIN [Suspect]
     Active Substance: PHENYTOIN
     Indication: Urinary tract infection
  12. VANCOMYCIN [Suspect]
     Active Substance: VANCOMYCIN
     Indication: Urinary tract infection

REACTIONS (2)
  - Multiple organ dysfunction syndrome [Recovered/Resolved]
  - Drug reaction with eosinophilia and systemic symptoms [Recovered/Resolved]
